FAERS Safety Report 7950916 (Version 9)
Quarter: 2017Q1

REPORT INFORMATION
  Report Type: Spontaneous
  Country: US (occurrence: US)
  Receive Date: 20110518
  Receipt Date: 20170221
  Transmission Date: 20170429
  Serious: Yes (Hospitalization, Disabling, Other)
  Sender: FDA-Public Use
  Company Number: US-009507513-1105USA02542

PATIENT
  Sex: Female
  Weight: 74.84 kg

DRUGS (10)
  1. BENICAR [Concomitant]
     Active Substance: OLMESARTAN MEDOXOMIL
     Indication: BLOOD PRESSURE MEASUREMENT
     Dates: start: 1991
  2. FOSAMAX [Suspect]
     Active Substance: ALENDRONATE SODIUM
     Indication: OSTEOPOROSIS
     Dosage: 70 MG, QW
     Route: 048
     Dates: start: 20011115, end: 2002
  3. FOSAMAX [Suspect]
     Active Substance: ALENDRONATE SODIUM
     Dosage: 70 MG, QW
     Route: 048
     Dates: start: 20060927, end: 201007
  4. FOSAMAX [Suspect]
     Active Substance: ALENDRONATE SODIUM
     Indication: OSTEOPOROSIS
     Dosage: 10 MG, QD
     Route: 048
     Dates: start: 20001017, end: 20011115
  5. FOSAMAX [Suspect]
     Active Substance: ALENDRONATE SODIUM
     Indication: OSTEOPOROSIS PROPHYLAXIS
     Dosage: 70 MG, QW
     Route: 048
     Dates: start: 20020702
  6. MK-9278 [Concomitant]
     Active Substance: VITAMINS
     Dates: start: 2000
  7. FOSAMAX [Suspect]
     Active Substance: ALENDRONATE SODIUM
     Indication: OSTEOPOROSIS PROPHYLAXIS
  8. PRILOSEC [Concomitant]
     Active Substance: OMEPRAZOLE MAGNESIUM
     Dates: start: 2001, end: 201004
  9. CLONIDINE. [Concomitant]
     Active Substance: CLONIDINE
     Indication: HYPERTENSION
     Dates: start: 1991
  10. MK-0805 [Concomitant]
     Active Substance: FUROSEMIDE
     Indication: FLUID RETENTION
     Dosage: APPROX. 1954 - PRESENT

REACTIONS (55)
  - Lumbar spinal stenosis [Unknown]
  - Pubis fracture [Unknown]
  - Synovial cyst [Unknown]
  - Insomnia [Unknown]
  - Arteriosclerosis [Unknown]
  - Arthralgia [Recovered/Resolved]
  - Dyspepsia [Unknown]
  - Fall [Unknown]
  - Chest pain [Unknown]
  - Rhinitis allergic [Unknown]
  - Psoriasis [Unknown]
  - Osteoporosis [Unknown]
  - Impaired healing [Unknown]
  - Gout [Unknown]
  - Fractured ischium [Unknown]
  - Lipids increased [Unknown]
  - Hip fracture [Unknown]
  - Low turnover osteopathy [Unknown]
  - Osteopenia [Unknown]
  - Spondylolisthesis [Unknown]
  - Asthma [Unknown]
  - Dyspnoea [Unknown]
  - Respiratory tract infection [Recovered/Resolved]
  - Arthralgia [Unknown]
  - Peripheral swelling [Unknown]
  - Diarrhoea [Unknown]
  - Hypoaesthesia [Unknown]
  - Occult blood positive [Unknown]
  - Sinus disorder [Unknown]
  - Arthralgia [Unknown]
  - Nausea [Recovered/Resolved]
  - Diarrhoea [Recovering/Resolving]
  - Femur fracture [Not Recovered/Not Resolved]
  - Costochondritis [Unknown]
  - Chronic obstructive pulmonary disease [Unknown]
  - Cholelithiasis [Unknown]
  - Upper respiratory tract infection [Unknown]
  - Weight decreased [Unknown]
  - Headache [Unknown]
  - Gastrooesophageal reflux disease [Unknown]
  - Vomiting [Recovered/Resolved]
  - Stress fracture [Unknown]
  - Confusional state [Unknown]
  - Arrhythmia [Unknown]
  - Fall [Unknown]
  - Constipation [Unknown]
  - Depression [Unknown]
  - Oedema [Unknown]
  - Fall [Unknown]
  - Pelvic pain [Unknown]
  - Fall [Unknown]
  - Lumbar radiculopathy [Unknown]
  - Intervertebral disc protrusion [Unknown]
  - Back pain [Unknown]
  - Pain in extremity [Unknown]

NARRATIVE: CASE EVENT DATE: 20001017
